FAERS Safety Report 5710491-1 (Version None)
Quarter: 2008Q2

REPORT INFORMATION
  Report Type: 
  Country: None (occurrence: None)
  Receive Date: 20080416
  Receipt Date: 20080408
  Transmission Date: 20081010
  Serious: Yes (Death)
  Sender: FDA-Public Use
  Company Number: 163-20785-08040645

PATIENT

DRUGS (1)
  1. THALOMID [Suspect]
     Indication: MANTLE CELL LYMPHOMA
     Dosage: 200 MG, DAILY, ORAL
     Route: 048

REACTIONS (2)
  - NEUTROPENIA [None]
  - NON-SMALL CELL LUNG CANCER [None]
